FAERS Safety Report 4845299-2 (Version None)
Quarter: 2005Q4

REPORT INFORMATION
  Report Type: 
  Country: None (occurrence: None)
  Receive Date: 20051205
  Receipt Date: 20051123
  Transmission Date: 20060501
  Serious: Yes (Other)
  Sender: FDA-Public Use
  Company Number: US-GLAXOSMITHKLINE-A0584164A

PATIENT
  Sex: Male

DRUGS (1)
  1. PAXIL CR [Suspect]
     Indication: GENERALISED ANXIETY DISORDER
     Dosage: 37.5MG PER DAY
     Route: 048

REACTIONS (5)
  - ANGER [None]
  - CRYING [None]
  - INFERTILITY MALE [None]
  - MOOD SWINGS [None]
  - ROAD TRAFFIC ACCIDENT [None]
